FAERS Safety Report 14249324 (Version 3)
Quarter: 2018Q1

REPORT INFORMATION
  Report Type: Report from Study
  Country: US (occurrence: US)
  Receive Date: 20171204
  Receipt Date: 20180108
  Transmission Date: 20180508
  Serious: Yes (Other)
  Sender: FDA-Public Use
  Company Number: US-AMGEN-USASL2017178946

PATIENT
  Sex: Male

DRUGS (1)
  1. ENBREL [Suspect]
     Active Substance: ETANERCEPT
     Indication: PSORIATIC ARTHROPATHY
     Dosage: 50 MG, QWK
     Route: 065
     Dates: end: 201711

REACTIONS (5)
  - Diarrhoea [Recovered/Resolved]
  - Psoriatic arthropathy [Not Recovered/Not Resolved]
  - Sinusitis [Recovered/Resolved]
  - Chronic kidney disease [Unknown]
  - Blood urine present [Not Recovered/Not Resolved]
